FAERS Safety Report 9501829 (Version 1)
Quarter: 2013Q3

REPORT INFORMATION
  Report Type: Report from Study
  Country: GR (occurrence: GR)
  Receive Date: 20130905
  Receipt Date: 20130905
  Transmission Date: 20140515
  Serious: Yes (Hospitalization)
  Sender: FDA-Public Use
  Company Number: GR-ELI_LILLY_AND_COMPANY-GR201308009210

PATIENT
  Age: 50 Year
  Sex: Male
  Weight: 122 kg

DRUGS (10)
  1. GEMCITABINE HYDROCHLORIDE [Suspect]
     Indication: PANCREATIC CARCINOMA
     Dosage: 2000 MG, EVERY 2 WEEKS
     Route: 042
     Dates: start: 20120529, end: 20120529
  2. GEMCITABINE HYDROCHLORIDE [Suspect]
     Dosage: 1600 MG, EVERY 2 WEEKS
     Route: 042
     Dates: start: 20120612
  3. TEMSIROLIMUS [Suspect]
     Indication: PANCREATIC CARCINOMA
     Dosage: 25 MG, WEEKLY (1/W)
     Route: 042
     Dates: start: 20120529
  4. ZOFRAN [Concomitant]
     Indication: PREMEDICATION
     Dosage: 8 MG, UNK
     Route: 042
     Dates: start: 20120529
  5. ZANTAC [Concomitant]
     Indication: PREMEDICATION
     Dosage: 50 MG, UNK
     Route: 042
     Dates: start: 20120529
  6. FENISTIL [Concomitant]
     Indication: PREMEDICATION
     Dosage: 8 MG, UNK
     Route: 042
     Dates: start: 20120529
  7. DEXAMETHASONE [Concomitant]
     Indication: PREMEDICATION
     Dosage: 4 MG, UNK
     Route: 042
     Dates: start: 20120529
  8. LOBIVON [Concomitant]
     Indication: HYPERTENSION
     Dosage: 5 MG, QD
     Route: 048
  9. EXFORGE [Concomitant]
     Indication: HYPERTENSION
     Dosage: UNK UNK, QD
  10. ARIXTRA [Concomitant]
     Indication: THROMBOSIS
     Dosage: 7.5 MG, QD
     Dates: start: 20120723, end: 20120726

REACTIONS (1)
  - Lung infection [Recovered/Resolved]
